FAERS Safety Report 11389256 (Version 1)
Quarter: 2015Q3

REPORT INFORMATION
  Report Type: Spontaneous
  Country: US (occurrence: US)
  Receive Date: 20150817
  Receipt Date: 20150817
  Transmission Date: 20151125
  Serious: Yes (Other)
  Sender: FDA-Public Use
  Company Number: US-BAYER-2015-400938

PATIENT
  Age: 52 Year
  Sex: Female

DRUGS (5)
  1. BAYER GENUINE ASPIRIN [Suspect]
     Active Substance: ASPIRIN
     Route: 048
  2. GABAPENTIN. [Concomitant]
     Active Substance: GABAPENTIN
     Indication: HOT FLUSH
  3. HERCEPTIN [Suspect]
     Active Substance: TRASTUZUMAB
  4. ANASTROZOLE. [Concomitant]
     Active Substance: ANASTROZOLE
  5. PREVACID [Concomitant]
     Active Substance: LANSOPRAZOLE
     Indication: DYSPEPSIA

REACTIONS (3)
  - Metastatic neoplasm [Not Recovered/Not Resolved]
  - Drug hypersensitivity [Unknown]
  - Metastases to lymph nodes [Not Recovered/Not Resolved]

NARRATIVE: CASE EVENT DATE: 201507
